FAERS Safety Report 14237760 (Version 1)
Quarter: 2017Q4

REPORT INFORMATION
  Report Type: Spontaneous
  Country: US (occurrence: US)
  Receive Date: 20171130
  Receipt Date: 20171130
  Transmission Date: 20180321
  Serious: Yes (Hospitalization)
  Sender: FDA-Public Use
  Company Number: US-ABBVIE-17K-163-2178333-00

PATIENT
  Sex: Female

DRUGS (2)
  1. HUMIRA [Suspect]
     Active Substance: ADALIMUMAB
     Indication: PSORIASIS
     Route: 058
     Dates: start: 201707
  2. COSENTYX [Suspect]
     Active Substance: SECUKINUMAB
     Indication: PSORIASIS
     Route: 065
     Dates: start: 2017

REACTIONS (9)
  - Throat tightness [Unknown]
  - Onychomadesis [Unknown]
  - Psoriasis [Recovering/Resolving]
  - Skin burning sensation [Unknown]
  - Pustular psoriasis [Unknown]
  - Asthenia [Unknown]
  - Alopecia [Unknown]
  - Gait inability [Unknown]
  - Pain in extremity [Unknown]

NARRATIVE: CASE EVENT DATE: 2017
